FAERS Safety Report 22374188 (Version 1)
Quarter: 2023Q2

REPORT INFORMATION
  Report Type: Spontaneous
  Country: CN (occurrence: CN)
  Receive Date: 20230526
  Receipt Date: 20230526
  Transmission Date: 20230721
  Serious: No
  Sender: FDA-Public Use
  Company Number: CN-ELI_LILLY_AND_COMPANY-CN202305012596

PATIENT
  Age: 39 Year
  Sex: Male

DRUGS (2)
  1. CIALIS [Suspect]
     Active Substance: TADALAFIL
     Indication: Erectile dysfunction
     Dosage: 5 MG, DAILY
     Route: 048
     Dates: start: 20230327, end: 20230415
  2. DAPOXETINE HYDROCHLORIDE [Suspect]
     Active Substance: DAPOXETINE HYDROCHLORIDE
     Indication: Erectile dysfunction
     Dosage: 30 MG, DAILY
     Route: 048
     Dates: start: 20230327, end: 20230415

REACTIONS (1)
  - Conjunctivitis [Unknown]

NARRATIVE: CASE EVENT DATE: 20230415
